FAERS Safety Report 11520005 (Version 1)
Quarter: 2015Q3

REPORT INFORMATION
  Report Type: Spontaneous
  Country: US (occurrence: US)
  Receive Date: 20150918
  Receipt Date: 20150918
  Transmission Date: 20151125
  Serious: No
  Sender: FDA-Public Use
  Company Number: US-RB-069266-14

PATIENT

DRUGS (2)
  1. MUCINEX MAXIMUM STRENGTH [Suspect]
     Active Substance: GUAIFENESIN
     Indication: RESPIRATORY TRACT CONGESTION
     Dosage: 1200MG. DURATION: ABOUT 2 WEEKS.,BID
     Route: 065
     Dates: end: 20140929
  2. TUMS [Concomitant]
     Active Substance: CALCIUM CARBONATE
     Indication: PRODUCT USED FOR UNKNOWN INDICATION
     Dosage: . PATIENT WAS TAKING THE PRODUUCT WITH EACH MEAL.,FREQUENCY UNK
     Route: 065

REACTIONS (2)
  - Incorrect drug administration duration [Recovered/Resolved]
  - Dry mouth [Not Recovered/Not Resolved]
